FAERS Safety Report 8565303 (Version 5)
Quarter: 2025Q2

REPORT INFORMATION
  Report Type: Spontaneous
  Country: US (occurrence: US)
  Receive Date: 20120516
  Receipt Date: 20250603
  Transmission Date: 20250716
  Serious: Yes (Hospitalization, Other)
  Sender: ROCHE
  Company Number: US-ROCHE-1069504

PATIENT
  Age: 59 Year
  Sex: Female

DRUGS (5)
  1. BONIVA [Suspect]
     Active Substance: IBANDRONATE SODIUM
     Indication: Osteoporosis
     Route: 048
     Dates: start: 200701, end: 200807
  2. BONIVA [Suspect]
     Active Substance: IBANDRONATE SODIUM
     Indication: Menopause
     Route: 048
     Dates: start: 200701, end: 200807
  3. FOSAMAX [Suspect]
     Active Substance: ALENDRONATE SODIUM
     Indication: Osteoporosis
     Route: 065
     Dates: start: 20040727, end: 200611
  4. FOSAMAX [Suspect]
     Active Substance: ALENDRONATE SODIUM
     Indication: Menopause
  5. FOSAMAX PLUS D [Suspect]
     Active Substance: ALENDRONATE SODIUM\CHOLECALCIFEROL
     Indication: Menopause
     Route: 065
     Dates: start: 20050114, end: 20080729

REACTIONS (4)
  - Femur fracture [Recovered/Resolved]
  - Emotional distress [Unknown]
  - Low turnover osteopathy [Unknown]
  - Stress fracture [Unknown]

NARRATIVE: CASE EVENT DATE: 20080729
